FAERS Safety Report 11076793 (Version 3)
Quarter: 2015Q3

REPORT INFORMATION
  Report Type: Report from Study
  Country: CA (occurrence: CA)
  Receive Date: 20150429
  Receipt Date: 20150706
  Transmission Date: 20151125
  Serious: Yes (Death, Hospitalization, Other)
  Sender: FDA-Public Use
  Company Number: PHHY2012CA060385

PATIENT
  Age: 79 Year
  Sex: Male

DRUGS (2)
  1. SANDOSTATIN [Suspect]
     Active Substance: OCTREOTIDE ACETATE
     Indication: NEUROENDOCRINE TUMOUR
     Dosage: UNK
     Route: 058
     Dates: start: 20120605, end: 20120605
  2. SANDOSTATIN LAR DEPOT [Suspect]
     Active Substance: OCTREOTIDE ACETATE
     Indication: NEUROENDOCRINE TUMOUR
     Dosage: 30 MG, QMO (REPORTED AS EVERY 4 WEEKS)
     Route: 030
     Dates: start: 20120611

REACTIONS (31)
  - Malaise [Unknown]
  - Abdominal distension [Unknown]
  - Dizziness [Unknown]
  - Headache [Unknown]
  - Metastases to liver [Unknown]
  - Diarrhoea [Unknown]
  - Weight decreased [Unknown]
  - Musculoskeletal chest pain [Unknown]
  - Asthenia [Unknown]
  - Death [Fatal]
  - Malignant neoplasm progression [Unknown]
  - Contusion [Unknown]
  - Weight decreased [Recovered/Resolved]
  - Skin discolouration [Unknown]
  - Frequent bowel movements [Unknown]
  - Injection site pain [Unknown]
  - Insomnia [Unknown]
  - Pain [Recovered/Resolved]
  - Dyspnoea [Unknown]
  - Oral candidiasis [Recovering/Resolving]
  - Hepatomegaly [Unknown]
  - Abdominal pain upper [Unknown]
  - Blood pressure increased [Unknown]
  - Painful respiration [Unknown]
  - Arthralgia [Recovered/Resolved]
  - Flatulence [Unknown]
  - Vomiting [Unknown]
  - Nausea [Unknown]
  - Decreased appetite [Unknown]
  - Musculoskeletal pain [Unknown]
  - Hyperhidrosis [Unknown]

NARRATIVE: CASE EVENT DATE: 20130118
